FAERS Safety Report 10989706 (Version 1)
Quarter: 2015Q2

REPORT INFORMATION
  Report Type: Report from Study
  Country: US (occurrence: US)
  Receive Date: 20150406
  Receipt Date: 20150406
  Transmission Date: 20150821
  Serious: Yes (Hospitalization, Other)
  Sender: FDA-Public Use
  Company Number: US-009507513-1503USA013886

PATIENT
  Age: 67 Year
  Sex: Male

DRUGS (18)
  1. KEPPRA [Concomitant]
     Active Substance: LEVETIRACETAM
     Dosage: 500 MG, BID
  2. COLACE [Concomitant]
     Active Substance: DOCUSATE SODIUM
     Dosage: 100 MG, BID
  3. NORVASC [Concomitant]
     Active Substance: AMLODIPINE BESYLATE
     Dosage: 5 MG, QD
  4. ASPIRIN. [Concomitant]
     Active Substance: ASPIRIN
     Dosage: 81 MG, QD
  5. FLOMAX [Concomitant]
     Active Substance: TAMSULOSIN HYDROCHLORIDE
     Dosage: 0.4 MG, 1 IN 1 AS REQUIRED
  6. PROTONIX [Concomitant]
     Active Substance: PANTOPRAZOLE SODIUM
     Dosage: 40 MG, QD
  7. CELEXA [Concomitant]
     Active Substance: CITALOPRAM HYDROBROMIDE
     Dosage: 30 MG, QD
  8. COZAAR [Concomitant]
     Active Substance: LOSARTAN POTASSIUM
     Dosage: 50 MG, QD
     Route: 048
  9. ASCORBIC ACID. [Concomitant]
     Active Substance: ASCORBIC ACID
     Dosage: 1000 MG, DAILY
  10. ZOFRAN [Concomitant]
     Active Substance: ONDANSETRON HYDROCHLORIDE
     Dosage: 8 MG, Q8H
  11. CHOLECALCIFEROL [Concomitant]
     Active Substance: CHOLECALCIFEROL
     Dosage: 2000 (UNITS NOT REPORTED), QD
  12. NORCO [Concomitant]
     Active Substance: ACETAMINOPHEN\HYDROCODONE BITARTRATE
     Dosage: 5-325MG, Q6H
  13. TEMODAR [Suspect]
     Active Substance: TEMOZOLOMIDE
     Indication: GLIOBLASTOMA
     Dosage: 400 MG, ON 1-5 DAYS OF A 28 DAY CYCLE
     Route: 065
     Dates: start: 20140611, end: 20150222
  14. BEVACIZUMAB [Suspect]
     Active Substance: BEVACIZUMAB
     Indication: GLIOBLASTOMA
     Dosage: 800 MG, QOW (EVERY 14 DAYS)
     Route: 042
     Dates: start: 20140414, end: 20150218
  15. TYLENOL [Concomitant]
     Active Substance: ACETAMINOPHEN
     Dosage: 1 DF, HS
     Route: 048
  16. MICROZIDE (HYDROCHLOROTHIAZIDE) [Concomitant]
     Dosage: 12.5 MG, QD
  17. PRAVACHOL [Concomitant]
     Active Substance: PRAVASTATIN SODIUM
     Dosage: 40 MG, HS
  18. CORTEF [Concomitant]
     Active Substance: HYDROCORTISONE
     Dosage: 20 MG IN THE MORNING DAILY AND 10 MG IN THE EVENING DAILY

REACTIONS (4)
  - Headache [Unknown]
  - Nausea [Unknown]
  - Vomiting [Unknown]
  - Pyramidal tract syndrome [Unknown]

NARRATIVE: CASE EVENT DATE: 20150301
